FAERS Safety Report 8267575-6 (Version None)
Quarter: 2012Q2

REPORT INFORMATION
  Report Type: 
  Country: None (occurrence: None)
  Receive Date: 20120409
  Receipt Date: 20120330
  Transmission Date: 20120825
  Serious: Yes (Hospitalization, Other)
  Sender: FDA-Public Use
  Company Number: PHFR2011GB02504

PATIENT
  Sex: Female

DRUGS (4)
  1. CLOZARIL [Suspect]
     Dosage: 400 MG, QD
     Route: 048
     Dates: start: 20110408, end: 20110602
  2. CLOZARIL [Suspect]
     Route: 048
     Dates: start: 20110929
  3. LYMECYCLINE [Concomitant]
     Indication: ACNE
  4. CLOZARIL [Suspect]
     Indication: SCHIZOPHRENIA
     Dosage: 400 MG, QD
     Route: 048
     Dates: start: 20110117

REACTIONS (14)
  - MATERNAL EXPOSURE DURING PREGNANCY [None]
  - ANTIPSYCHOTIC DRUG LEVEL BELOW THERAPEUTIC [None]
  - REFUSAL OF TREATMENT BY PATIENT [None]
  - MENTAL IMPAIRMENT [None]
  - DELIRIUM [None]
  - ABNORMAL BEHAVIOUR [None]
  - PAIN [None]
  - DISORIENTATION [None]
  - ANXIETY [None]
  - PAIN IN EXTREMITY [None]
  - DRUG DOSE OMISSION [None]
  - MALAISE [None]
  - SOMATISATION DISORDER [None]
  - ACNE [None]
